FAERS Safety Report 18949827 (Version 1)
Quarter: 2021Q1

REPORT INFORMATION
  Report Type: Spontaneous
  Country: US (occurrence: US)
  Receive Date: 20210227
  Receipt Date: 20210227
  Transmission Date: 20210420
  Serious: No
  Sender: FDA-Public Use
  Company Number: US-ROCHE-2615996

PATIENT
  Age: 72 Year
  Sex: Male
  Weight: 99.88 kg

DRUGS (1)
  1. XOLAIR [Suspect]
     Active Substance: OMALIZUMAB
     Indication: URTICARIA
     Dosage: ONGOING: YES
     Route: 058

REACTIONS (3)
  - Product dose omission issue [Unknown]
  - Product storage error [Unknown]
  - No adverse event [Unknown]
